FAERS Safety Report 6841365-0 (Version None)
Quarter: 2010Q3

REPORT INFORMATION
  Report Type: 
  Country: None (occurrence: None)
  Receive Date: 20100714
  Receipt Date: 20070702
  Transmission Date: 20110219
  Serious: No
  Sender: FDA-Public Use
  Company Number: US-PFIZER INC-2007055684

PATIENT
  Sex: Female
  Weight: 80.9 kg

DRUGS (12)
  1. CHANTIX [Suspect]
     Indication: SMOKING CESSATION THERAPY
     Route: 048
     Dates: start: 20070101, end: 20070501
  2. LOVAZA [Concomitant]
  3. ADVAIR DISKUS 100/50 [Concomitant]
  4. LITHIUM [Concomitant]
  5. PREVACID [Concomitant]
  6. PLAVIX [Concomitant]
  7. LEXAPRO [Concomitant]
  8. XANAX [Concomitant]
  9. LIPITOR [Concomitant]
     Dates: end: 20070101
  10. COMBIVENT [Concomitant]
  11. ALLEGRA D 24 HOUR [Concomitant]
  12. SPIRIVA [Concomitant]

REACTIONS (1)
  - NAUSEA [None]
